FAERS Safety Report 23668188 (Version 1)
Quarter: 2024Q1

REPORT INFORMATION
  Report Type: Spontaneous
  Country: US (occurrence: US)
  Receive Date: 20240325
  Receipt Date: 20240325
  Transmission Date: 20240410
  Serious: Yes (Other)
  Sender: FDA-Public Use
  Company Number: US-AUROBINDO-AUR-APL-2024-013047

PATIENT
  Age: 56 Year
  Sex: Male

DRUGS (2)
  1. LIDOCAINE [Suspect]
     Active Substance: LIDOCAINE
     Indication: Haemorrhage
     Dosage: 2 %
     Route: 065
  2. SALINE [Suspect]
     Active Substance: SODIUM CHLORIDE
     Indication: Haemorrhage
     Dosage: UNK
     Route: 065

REACTIONS (1)
  - Drug ineffective [Unknown]
